FAERS Safety Report 4656503-8 (Version None)
Quarter: 2005Q2

REPORT INFORMATION
  Report Type: 
  Country: None (occurrence: None)
  Receive Date: 20050509
  Receipt Date: 20050426
  Transmission Date: 20051028
  Serious: Yes (Other)
  Sender: FDA-Public Use
  Company Number: JP-NOVOPROD-243848

PATIENT
  Age: 30 Year
  Sex: Female

DRUGS (2)
  1. NOVOLIN R [Suspect]
     Indication: DIABETES MELLITUS
  2. NOVOLIN N CHU [Suspect]
     Indication: DIABETES MELLITUS

REACTIONS (4)
  - DIABETIC RETINOPATHY [None]
  - DRUG EXPOSURE DURING PREGNANCY [None]
  - VASODILATATION [None]
  - VITREOUS HAEMORRHAGE [None]
